FAERS Safety Report 23447520 (Version 1)
Quarter: 2024Q1

REPORT INFORMATION
  Report Type: Spontaneous
  Country: US (occurrence: US)
  Receive Date: 20240126
  Receipt Date: 20240126
  Transmission Date: 20240410
  Serious: No
  Sender: FDA-Public Use
  Company Number: US-MYLANLABS-2023M1134600

PATIENT
  Sex: Male
  Weight: 72.57 kg

DRUGS (3)
  1. FENTANYL TRANSDERMAL SYSTEM [Suspect]
     Active Substance: FENTANYL
     Indication: Pain management
     Dosage: 0.025 MG / HR. OR 0.5 MCG (1 PATCH EVERY 3 DAYS)
     Route: 062
  2. LIPITOR [Concomitant]
     Active Substance: ATORVASTATIN CALCIUM
     Dosage: UNK
     Route: 065
  3. METOPROLOL [Concomitant]
     Active Substance: METOPROLOL
     Indication: Hypertension
     Dosage: UNK
     Route: 065

REACTIONS (2)
  - Skin injury [Unknown]
  - Application site discolouration [Unknown]
